FAERS Safety Report 15075049 (Version 1)
Quarter: 2018Q2

REPORT INFORMATION
  Report Type: Report from Study
  Country: US (occurrence: US)
  Receive Date: 20180627
  Receipt Date: 20180627
  Transmission Date: 20180711
  Serious: No
  Sender: FDA-Public Use
  Company Number: US-SAOL THERAPEUTICS-2017SAO01713

PATIENT
  Age: 48 Year
  Sex: Female

DRUGS (3)
  1. BOTOX [Suspect]
     Active Substance: ONABOTULINUMTOXINA
     Dosage: UNK
     Dates: start: 20160711, end: 20160711
  2. LIORESAL [Suspect]
     Active Substance: BACLOFEN
     Dosage: 75.05 ?G, \DAY
     Route: 037
     Dates: end: 20160720
  3. LIORESAL [Suspect]
     Active Substance: BACLOFEN
     Dosage: 89.95 ?G, \DAY
     Route: 037
     Dates: start: 20160720

REACTIONS (4)
  - Headache [Recovered/Resolved]
  - Nausea [Recovered/Resolved]
  - Photophobia [Recovered/Resolved]
  - Vomiting [Recovered/Resolved]

NARRATIVE: CASE EVENT DATE: 20160720
